FAERS Safety Report 6499885-7 (Version None)
Quarter: 2009Q4

REPORT INFORMATION
  Report Type: 
  Country: None (occurrence: None)
  Receive Date: 20091214
  Receipt Date: 20091214
  Transmission Date: 20100525
  Serious: Yes (Other)
  Sender: FDA-Public Use
  Company Number: None

PATIENT
  Sex: Male
  Weight: 147 kg

DRUGS (3)
  1. HALDOL [Suspect]
     Dosage: 2.5 MG ONE TIME IV
     Route: 042
  2. RISPERIDONE [Suspect]
     Dosage: 1 MG Q 12H
  3. METOCLOPRAM [Suspect]
     Dosage: 5 MG Q 6H

REACTIONS (1)
  - EXTRAPYRAMIDAL DISORDER [None]
